FAERS Safety Report 14867853 (Version 1)
Quarter: 2018Q2

REPORT INFORMATION
  Report Type: Report from Study
  Country: US (occurrence: US)
  Receive Date: 20180509
  Receipt Date: 20180509
  Transmission Date: 20180711
  Serious: Yes (Hospitalization)
  Sender: FDA-Public Use
  Company Number: US-ROCHE-2115375

PATIENT
  Age: 59 Year
  Sex: Female
  Weight: 68.9 kg

DRUGS (2)
  1. TEMOZOLOMIDE. [Suspect]
     Active Substance: TEMOZOLOMIDE
     Indication: GLIOBLASTOMA MULTIFORME
     Dosage: ON 23/APR/2018, SHE RECEIVED MOST RECENT DOSE OF TEMOZOLOMIDE PRIOR TO EVENTS.
     Route: 048
     Dates: start: 20180320
  2. ATEZOLIZUMAB. [Suspect]
     Active Substance: ATEZOLIZUMAB
     Indication: GLIOBLASTOMA MULTIFORME
     Dosage: ON 16/APR/2018, SHE RECEIVED MOST RECENT DOSE OF ATEZOLIZUMAB PRIOR TO EVENTS.
     Route: 042
     Dates: start: 20180319, end: 20180416

REACTIONS (4)
  - Abdominal pain upper [Unknown]
  - Abdominal distension [Unknown]
  - Jaundice [Unknown]
  - Hepatitis acute [Unknown]

NARRATIVE: CASE EVENT DATE: 20180424
